FAERS Safety Report 21363743 (Version 1)
Quarter: 2022Q3

REPORT INFORMATION
  Report Type: Spontaneous
  Country: PT (occurrence: None)
  Receive Date: 20220922
  Receipt Date: 20220922
  Transmission Date: 20221027
  Serious: Yes (Life-Threatening, Hospitalization, Other)
  Sender: FDA-Public Use
  Company Number: PT-MICRO LABS LIMITED-ML2022-04734

PATIENT
  Age: 79 Year
  Sex: Female

DRUGS (2)
  1. APIXABAN [Suspect]
     Active Substance: APIXABAN
     Indication: Atrial fibrillation
  2. APIXABAN [Suspect]
     Active Substance: APIXABAN
     Dosage: RESUMED ON HOSPITALIZATION DAY 47

REACTIONS (3)
  - Kidney rupture [Recovered/Resolved]
  - Shock haemorrhagic [Recovered/Resolved]
  - Renal haemorrhage [Recovered/Resolved]
